FAERS Safety Report 4554228-0 (Version None)
Quarter: 2004Q4

REPORT INFORMATION
  Report Type: 
  Country: None (occurrence: None)
  Receive Date: 20041230
  Receipt Date: 20040709
  Transmission Date: 20050328
  Serious: Yes (Hospitalization)
  Sender: FDA-Public Use
  Company Number: 04-07-0992

PATIENT
  Age: 40 Year
  Sex: Male
  Weight: 73.9363 kg

DRUGS (4)
  1. CLOZAPINE [Suspect]
     Indication: SCHIZOPHRENIA, PARANOID TYPE
     Dosage: 900MG QD ORAL
     Route: 048
     Dates: start: 20030501, end: 20040601
  2. LOXITANE [Concomitant]
  3. DEPAKOTE [Concomitant]
  4. ATIVAN [Concomitant]

REACTIONS (4)
  - PSYCHOTIC DISORDER [None]
  - SALIVARY HYPERSECRETION [None]
  - SEDATION [None]
  - URINARY INCONTINENCE [None]
